FAERS Safety Report 21209424 (Version 3)
Quarter: 2022Q3

REPORT INFORMATION
  Report Type: Report from Study
  Country: PL (occurrence: PL)
  Receive Date: 20220813
  Receipt Date: 20220916
  Transmission Date: 20221027
  Serious: Yes (Hospitalization)
  Sender: FDA-Public Use
  Company Number: PL-JNJFOC-20220810171

PATIENT
  Age: 64 Year
  Sex: Female
  Weight: 93 kg

DRUGS (44)
  1. ESKETAMINE [Suspect]
     Active Substance: ESKETAMINE
     Indication: Depression
     Dates: start: 20170606
  2. ESKETAMINE [Suspect]
     Active Substance: ESKETAMINE
     Dosage: 26-JUL-2022 (WEEK 266 VISIT)
     Dates: start: 20220705, end: 20220726
  3. ESKETAMINE [Suspect]
     Active Substance: ESKETAMINE
     Dosage: WEEK 267 VISIT
     Dates: start: 20220809
  4. ESKETAMINE [Suspect]
     Active Substance: ESKETAMINE
     Dosage: MOST RECENT DOSE
     Dates: start: 20220906
  5. ACYCLOVIR [Concomitant]
     Active Substance: ACYCLOVIR
     Indication: Herpes zoster
     Route: 048
     Dates: start: 20181106, end: 20181112
  6. BISOPROLOL [Concomitant]
     Active Substance: BISOPROLOL
     Indication: Hypertension
     Route: 048
     Dates: start: 2011, end: 20201123
  7. BISOPROLOL [Concomitant]
     Active Substance: BISOPROLOL
     Route: 048
     Dates: start: 20201124
  8. SPIRONOLACTONE [Concomitant]
     Active Substance: SPIRONOLACTONE
     Indication: Hypertension
     Route: 048
     Dates: start: 2011, end: 20201123
  9. DULOXETINE [Concomitant]
     Active Substance: DULOXETINE
     Indication: Depression
     Route: 048
     Dates: start: 20170321, end: 20181116
  10. DULOXETINE [Concomitant]
     Active Substance: DULOXETINE
     Route: 048
     Dates: start: 20181117, end: 20190416
  11. DULOXETINE [Concomitant]
     Active Substance: DULOXETINE
     Route: 048
     Dates: start: 20190417, end: 20201124
  12. DULOXETINE [Concomitant]
     Active Substance: DULOXETINE
     Route: 048
     Dates: start: 20201125, end: 20201127
  13. TAROMENTIN [AMOXICILLIN SODIUM;CLAVULANATE POTASSIUM] [Concomitant]
     Indication: Sinusitis
     Route: 048
     Dates: start: 20181106, end: 20181112
  14. METFORMIN HYDROCHLORIDE [Concomitant]
     Active Substance: METFORMIN HYDROCHLORIDE
     Indication: Glucose tolerance impaired
     Route: 048
     Dates: start: 20181106, end: 20201123
  15. METFORMIN HYDROCHLORIDE [Concomitant]
     Active Substance: METFORMIN HYDROCHLORIDE
     Indication: Type 2 diabetes mellitus
     Route: 048
     Dates: start: 20201124, end: 20210308
  16. METFORMIN HYDROCHLORIDE [Concomitant]
     Active Substance: METFORMIN HYDROCHLORIDE
     Route: 048
     Dates: start: 20210309, end: 20220215
  17. METFORMIN HYDROCHLORIDE [Concomitant]
     Active Substance: METFORMIN HYDROCHLORIDE
     Route: 048
     Dates: start: 20220216
  18. ALPRAZOLAM [Concomitant]
     Active Substance: ALPRAZOLAM
     Indication: Fear
     Route: 048
     Dates: start: 20190304, end: 20190304
  19. ALPRAZOLAM [Concomitant]
     Active Substance: ALPRAZOLAM
     Indication: Anxiety
     Route: 048
     Dates: start: 20190818, end: 20190818
  20. FURAZIDINE [Concomitant]
     Active Substance: FURAZIDINE
     Indication: Urinary tract infection
     Route: 048
     Dates: start: 20190604, end: 20190610
  21. HYMECROMONUM [Concomitant]
     Indication: Alanine aminotransferase increased
     Route: 048
     Dates: start: 20200506, end: 20201123
  22. TIMONACIC [Concomitant]
     Active Substance: TIMONACIC
     Indication: Alanine aminotransferase increased
     Route: 048
     Dates: start: 20200506
  23. LEVOTHYROXINUM NATRICUM [Concomitant]
     Indication: Hypothyroidism
     Route: 048
     Dates: start: 20200918, end: 20201123
  24. LEVOTHYROXINUM NATRICUM [Concomitant]
     Route: 048
     Dates: start: 20201124
  25. CITALOPRAM [Concomitant]
     Active Substance: CITALOPRAM HYDROBROMIDE
     Indication: Depression
     Route: 048
     Dates: start: 20201124, end: 20220208
  26. CITALOPRAM [Concomitant]
     Active Substance: CITALOPRAM HYDROBROMIDE
     Route: 048
     Dates: start: 20220209
  27. PREGABALIN [Concomitant]
     Active Substance: PREGABALIN
     Indication: Intervertebral discitis
     Route: 048
     Dates: start: 20201124, end: 20210122
  28. OXYCODONE [Concomitant]
     Active Substance: OXYCODONE
     Indication: Intervertebral discitis
     Route: 048
     Dates: start: 20201124, end: 202012
  29. CLOXACILLIN SODIUM [Concomitant]
     Active Substance: CLOXACILLIN SODIUM
     Indication: Intervertebral discitis
     Route: 042
     Dates: start: 20201124, end: 20210122
  30. AMLODIPINE BESYLATE [Concomitant]
     Active Substance: AMLODIPINE BESYLATE
     Indication: Hypertension
     Route: 048
     Dates: start: 20201124, end: 20210122
  31. AMIKACINUM [Concomitant]
     Indication: Conjunctivitis
     Dosage: 1 DROP
     Route: 047
     Dates: start: 20201124, end: 20210122
  32. OMEPRAZOLE [Concomitant]
     Active Substance: OMEPRAZOLE
     Indication: Prophylaxis
     Route: 048
     Dates: start: 20201124
  33. FUROSEMIDE [Concomitant]
     Active Substance: FUROSEMIDE
     Indication: Hypertension
     Route: 048
     Dates: start: 20201124, end: 20210122
  34. ALLOPURINOL [Concomitant]
     Active Substance: ALLOPURINOL
     Indication: Blood uric acid increased
     Route: 048
     Dates: start: 20201124
  35. ACETAMINOPHEN [Concomitant]
     Active Substance: ACETAMINOPHEN
     Indication: Intervertebral discitis
     Route: 048
     Dates: start: 20201124, end: 20210122
  36. URSOCAM [Concomitant]
     Indication: Prophylaxis
     Route: 048
     Dates: start: 2020
  37. CANDESARTAN CILEXETIL [Concomitant]
     Active Substance: CANDESARTAN CILEXETIL
     Indication: Hypertension
     Route: 048
     Dates: start: 20201124
  38. TORSEMIDE [Concomitant]
     Active Substance: TORSEMIDE
     Indication: Hypertension
     Route: 048
     Dates: start: 20201124
  39. ROSUVASTATIN [Concomitant]
     Active Substance: ROSUVASTATIN
     Indication: Atherosclerosis prophylaxis
     Route: 048
     Dates: start: 20201124, end: 20210122
  40. CIPROFLOXACINUM [CIPROFLOXACIN] [Concomitant]
     Indication: Urinary tract infection
     Route: 048
     Dates: start: 20210629, end: 20210703
  41. GLICLAZIDE [Concomitant]
     Active Substance: GLICLAZIDE
     Indication: Type 2 diabetes mellitus
     Route: 048
     Dates: start: 20220202, end: 20220215
  42. CANAGLIFLOZIN [Concomitant]
     Active Substance: CANAGLIFLOZIN
     Indication: Type 2 diabetes mellitus
     Route: 048
     Dates: start: 20220216, end: 20220427
  43. COROSWERA [Concomitant]
     Indication: Prophylaxis
     Route: 048
     Dates: start: 20220406
  44. METAMIZOLE SODIUM [Concomitant]
     Active Substance: METAMIZOLE SODIUM
     Indication: Intervertebral discitis
     Route: 042
     Dates: start: 20201124, end: 20210122

REACTIONS (1)
  - Coronary artery disease [Recovered/Resolved]

NARRATIVE: CASE EVENT DATE: 20220731
